FAERS Safety Report 12555518 (Version 1)
Quarter: 2016Q3

REPORT INFORMATION
  Report Type: Spontaneous
  Country: IN (occurrence: IN)
  Receive Date: 20160714
  Receipt Date: 20160714
  Transmission Date: 20161109
  Serious: Yes (Other)
  Sender: FDA-Public Use
  Company Number: IN-PAR PHARMACEUTICAL COMPANIES-2016SCPR015624

PATIENT

DRUGS (5)
  1. MILRINONE [Concomitant]
     Active Substance: MILRINONE
     Indication: PRODUCT USED FOR UNKNOWN INDICATION
     Dosage: UNK, UNKNOWN
     Route: 065
  2. ADRENALIN [Suspect]
     Active Substance: EPINEPHRINE
     Dosage: 0.025 MCG, UNKNOWN
     Route: 065
  3. ADRENALIN [Suspect]
     Active Substance: EPINEPHRINE
     Dosage: 0.1 MCG, UNKNOWN
     Route: 065
  4. ADRENALIN [Suspect]
     Active Substance: EPINEPHRINE
     Indication: PRODUCT USED FOR UNKNOWN INDICATION
     Dosage: 0.1 MCG, UNKNOWN
     Route: 065
  5. SILDENAFIL. [Concomitant]
     Active Substance: SILDENAFIL
     Indication: PRODUCT USED FOR UNKNOWN INDICATION
     Dosage: UNK, UNKNOWN
     Route: 042

REACTIONS (4)
  - Cardiac arrest [Recovering/Resolving]
  - Bradycardia [Unknown]
  - Hypertension [Unknown]
  - Hyperkalaemia [Recovered/Resolved]
